FAERS Safety Report 18949324 (Version 3)
Quarter: 2021Q1

REPORT INFORMATION
  Report Type: Spontaneous
  Country: JP (occurrence: JP)
  Receive Date: 20210227
  Receipt Date: 20210331
  Transmission Date: 20210420
  Serious: Yes (Hospitalization, Other)
  Sender: FDA-Public Use
  Company Number: NVSC2021JP016008

PATIENT
  Age: 78 Year
  Sex: Female

DRUGS (1)
  1. RIVASTACH [Suspect]
     Active Substance: RIVASTIGMINE
     Indication: DEMENTIA ALZHEIMER^S TYPE
     Dosage: 0.5 DF
     Route: 062

REACTIONS (3)
  - Wrong technique in product usage process [Unknown]
  - Lacunar infarction [Unknown]
  - Product prescribing error [Unknown]
